FAERS Safety Report 8061895-6 (Version None)
Quarter: 2012Q1

REPORT INFORMATION
  Report Type: 
  Country: None (occurrence: None)
  Receive Date: 20120117
  Receipt Date: 20120106
  Transmission Date: 20120608
  Serious: Yes (Disabling, Other)
  Sender: FDA-Public Use
  Company Number: 2011MA002906

PATIENT

DRUGS (1)
  1. METOCLOPRAMIDE [Suspect]
     Indication: GASTROINTESTINAL DISORDER
     Dosage: 10 MG;QID
     Dates: start: 20060510, end: 20090327

REACTIONS (11)
  - PROTRUSION TONGUE [None]
  - ECONOMIC PROBLEM [None]
  - FAMILY STRESS [None]
  - TARDIVE DYSKINESIA [None]
  - EXCESSIVE EYE BLINKING [None]
  - DYSKINESIA [None]
  - PAIN [None]
  - UNEVALUABLE EVENT [None]
  - INCORRECT DRUG ADMINISTRATION DURATION [None]
  - ANXIETY [None]
  - EXTRAPYRAMIDAL DISORDER [None]
